FAERS Safety Report 7469592 (Version 3)
Quarter: 2016Q3

REPORT INFORMATION
  Report Type: Report from Study
  Country: US (occurrence: US)
  Receive Date: 20100713
  Receipt Date: 20160914
  Transmission Date: 20161109
  Serious: Yes (Other)
  Sender: FDA-Public Use
  Company Number: US-ROCHE-714037

PATIENT
  Age: 81 Year
  Sex: Female
  Weight: 56.1 kg

DRUGS (15)
  1. BEVACIZUMAB [Suspect]
     Active Substance: BEVACIZUMAB
     Dosage: FREQUENCY: OVER 30-90 MINUTES ON DAYS 1 AND 15. CYCLE= 28 DAYS. COURSE NO: 1
     Route: 042
  2. BEVACIZUMAB [Suspect]
     Active Substance: BEVACIZUMAB
     Dosage: FREQUENCY: OVER 30-90 MINUTES ON DAYS 1 AND 15. CYCLE= 28 DAYS. COURSE NO: 1
     Route: 042
  3. BEVACIZUMAB [Suspect]
     Active Substance: BEVACIZUMAB
     Dosage: FREQUENCY: OVER 30-90 MINUTES ON DAYS 1 AND 15. CYCLE= 28 DAYS. COURSE NO: 1
     Route: 042
  4. BEVACIZUMAB [Suspect]
     Active Substance: BEVACIZUMAB
     Dosage: FREQUENCY: OVER 30-90 MINUTES ON DAYS 1 AND 15. CYCLE= 28 DAYS. COURSE NO: 1
     Route: 042
  5. TEMSIROLIMUS [Suspect]
     Active Substance: TEMSIROLIMUS
     Dosage: ON DAYS 1,8,15,22. LAST DOSE PRIOR TO SAE: 26 APRIL 2010, COURSE 3
     Route: 042
  6. BEVACIZUMAB [Suspect]
     Active Substance: BEVACIZUMAB
     Dosage: FREQUENCY: OVER 30-90 MINUTES ON DAYS 1 AND 15. CYCLE= 28 DAYS. COURSE NO: 1
     Route: 042
  7. BEVACIZUMAB [Suspect]
     Active Substance: BEVACIZUMAB
     Dosage: FREQUENCY: OVER 30-90 MINUTES ON DAYS 1 AND 15. CYCLE= 28 DAYS. COURSE NO: 1
     Route: 042
  8. BEVACIZUMAB [Suspect]
     Active Substance: BEVACIZUMAB
     Dosage: FREQUENCY: OVER 30-90 MINUTES ON DAYS 1 AND 15. CYCLE= 28 DAYS. COURSE NO: 1
     Route: 042
  9. TEMSIROLIMUS [Suspect]
     Active Substance: TEMSIROLIMUS
     Indication: CARCINOID TUMOUR
     Dosage: FREQUENCY: ON DAYS 1, 8, 15, 22. CYCLE=28 DAYS. FIRST COURSE.
     Route: 042
  10. TEMSIROLIMUS [Suspect]
     Active Substance: TEMSIROLIMUS
     Dosage: FREQUENCY: ON DAYS 1, 8, 15, 22. CYCLE=28 DAYS. FIRST COURSE.
     Route: 042
  11. TEMSIROLIMUS [Suspect]
     Active Substance: TEMSIROLIMUS
     Dosage: FREQUENCY: ON DAYS 1, 8, 15, 22. CYCLE=28 DAYS. FIRST COURSE.
     Route: 042
  12. BEVACIZUMAB [Suspect]
     Active Substance: BEVACIZUMAB
     Dosage: CYCLE 28 DAYS,FREQUENCY OVER 30-90MIN ON DAYS 1 AND 15,LAST DOSE PRIOR TO SAE 26 APRIL 2010,COURSE 3
     Route: 042
  13. BEVACIZUMAB [Suspect]
     Active Substance: BEVACIZUMAB
     Dosage: FREQUENCY: OVER 30-90 MINUTES ON DAYS 1 AND 15. CYCLE= 28 DAYS. COURSE NO: 1
     Route: 042
  14. BEVACIZUMAB [Suspect]
     Active Substance: BEVACIZUMAB
     Indication: CARCINOID TUMOUR
     Dosage: FREQUENCY: OVER 30-90 MINUTES ON DAYS 1 AND 15. CYCLE= 28 DAYS. COURSE NO: 1
     Route: 042
  15. BEVACIZUMAB [Suspect]
     Active Substance: BEVACIZUMAB
     Dosage: FREQUENCY: OVER 30-90 MINUTES ON DAYS 1 AND 15. CYCLE= 28 DAYS. COURSE NO: 1
     Route: 042

REACTIONS (4)
  - Blood bilirubin increased [Unknown]
  - Hyperbilirubinaemia [Recovered/Resolved]
  - Platelet count decreased [Unknown]
  - Upper gastrointestinal haemorrhage [Unknown]

NARRATIVE: CASE EVENT DATE: 20100503
